FAERS Safety Report 21211670 (Version 1)
Quarter: 2022Q3

REPORT INFORMATION
  Report Type: Spontaneous
  Country: US (occurrence: None)
  Receive Date: 20220812
  Receipt Date: 20220812
  Transmission Date: 20221027
  Serious: No
  Sender: FDA-Public Use
  Company Number: None

PATIENT
  Age: 41 Year
  Sex: Male
  Weight: 112.9 kg

DRUGS (5)
  1. ZOLINZA [Suspect]
     Active Substance: VORINOSTAT
     Indication: Cutaneous T-cell lymphoma
     Dosage: FREQUENCY : DAILY;?
     Route: 048
     Dates: start: 202205, end: 20220812
  2. CLOBETASOL PROPIONATE [Concomitant]
  3. LORAZEPAM [Concomitant]
  4. OLANZAPINE [Concomitant]
  5. ZOLPIDEM [Concomitant]
     Active Substance: ZOLPIDEM TARTRATE

REACTIONS (2)
  - Disease progression [None]
  - Therapy cessation [None]
